FAERS Safety Report 10098630 (Version 1)
Quarter: 2014Q2

REPORT INFORMATION
  Report Type: Spontaneous
  Country: PE (occurrence: PE)
  Receive Date: 20140423
  Receipt Date: 20140423
  Transmission Date: 20141212
  Serious: Yes (Other)
  Sender: FDA-Public Use
  Company Number: PE-PFIZER INC-2014110755

PATIENT
  Age: 68 Year
  Sex: Male

DRUGS (1)
  1. LOPID [Suspect]
     Dosage: UNK
     Route: 048
     Dates: end: 201304

REACTIONS (1)
  - Gallbladder disorder [Recovered/Resolved]
